FAERS Safety Report 10234656 (Version 2)
Quarter: 2014Q2

REPORT INFORMATION
  Report Type: Report from Study
  Country: US (occurrence: US)
  Receive Date: 20140613
  Receipt Date: 20140613
  Transmission Date: 20141212
  Serious: Yes (Death, Hospitalization)
  Sender: FDA-Public Use
  Company Number: US-BIOGENIDEC-2014BI053899

PATIENT
  Age: 75 Year
  Sex: Male

DRUGS (17)
  1. TECFIDERA [Suspect]
     Indication: PRODUCT USED FOR UNKNOWN INDICATION
     Route: 048
  2. ADVAIR [Concomitant]
  3. PLAVIX [Concomitant]
  4. CELEBREX [Concomitant]
  5. LEXAPRO [Concomitant]
  6. LOSARTAN/HCT [Concomitant]
  7. CENTRUM SILVER [Concomitant]
  8. SIMVASTATIN [Concomitant]
  9. MONTELUKAST [Concomitant]
  10. VITAMIN C [Concomitant]
  11. AZELASTINE [Concomitant]
  12. MAGNESIUM [Concomitant]
  13. VITAMIN D3 [Concomitant]
  14. MUCINEX D [Concomitant]
  15. ATIVAN [Concomitant]
  16. SENNA [Concomitant]
  17. IBUPROFEN [Concomitant]

REACTIONS (4)
  - Spinal compression fracture [Fatal]
  - Fall [Fatal]
  - Facial bones fracture [Unknown]
  - Abdominal discomfort [Unknown]
